FAERS Safety Report 6983861-1 (Version None)
Quarter: 2010Q3

REPORT INFORMATION
  Report Type: 
  Country: None (occurrence: None)
  Receive Date: 20100914
  Receipt Date: 20090319
  Transmission Date: 20110219
  Serious: No
  Sender: FDA-Public Use
  Company Number: US-WYE-H08652309

PATIENT
  Age: 68 Year
  Sex: Female
  Weight: 56.75 kg

DRUGS (3)
  1. ADVIL LIQUI-GELS [Suspect]
     Indication: PAIN
     Dosage: 1-2 LIQUI-GELS AS NEEDED
     Route: 048
  2. NORVASC [Concomitant]
  3. COZAAR [Concomitant]

REACTIONS (1)
  - COELIAC DISEASE [None]
